FAERS Safety Report 6313217-6 (Version None)
Quarter: 2009Q3

REPORT INFORMATION
  Report Type: 
  Country: None (occurrence: None)
  Receive Date: 20090818
  Receipt Date: 20090812
  Transmission Date: 20100115
  Serious: Yes (Other)
  Sender: FDA-Public Use
  Company Number: US-AVENTIS-200914658US

PATIENT
  Sex: Female
  Weight: 68.18 kg

DRUGS (7)
  1. LANTUS [Suspect]
     Route: 058
     Dates: start: 20040101
  2. LANTUS [Suspect]
     Route: 058
     Dates: start: 20090625
  3. LASIX [Concomitant]
     Indication: HYPERTENSION
     Dosage: DOSE: 2 TABS
     Route: 048
  4. TOPROL-XL [Concomitant]
     Indication: HYPERTENSION
     Dosage: DOSE: 1 TAB
     Route: 048
  5. COLACE [Concomitant]
     Dosage: DOSE: 2 CAPS PER DAY
  6. MIRALAX [Concomitant]
     Indication: LAXATIVE SUPPORTIVE CARE
     Dosage: DOSE: 1 1/2 CUPS
  7. SYNTHROID [Concomitant]
     Dosage: DOSE: 1 TAB DAILY

REACTIONS (1)
  - PANCREATIC CARCINOMA [None]
